FAERS Safety Report 7060555-8 (Version None)
Quarter: 2010Q4

REPORT INFORMATION
  Report Type: 
  Country: None (occurrence: None)
  Receive Date: 20101025
  Receipt Date: 20101014
  Transmission Date: 20110411
  Serious: Yes (Hospitalization)
  Sender: FDA-Public Use
  Company Number: US-ROCHE-734249

PATIENT
  Sex: Female
  Weight: 46.7 kg

DRUGS (2)
  1. AVASTIN [Suspect]
     Indication: BREAST CANCER
     Dosage: LAST DOSE PRIOR TO SAE WAS REPORTED 6 DAY PRIOR.
     Route: 042
     Dates: start: 20080620, end: 20100810
  2. AVASTIN [Suspect]
     Route: 042
     Dates: start: 20101006

REACTIONS (3)
  - GASTRITIS [None]
  - GASTROINTESTINAL OEDEMA [None]
  - SMALL INTESTINAL OBSTRUCTION [None]
